FAERS Safety Report 9742675 (Version 1)
Quarter: 2013Q4

REPORT INFORMATION
  Report Type: Spontaneous
  Country: US (occurrence: US)
  Receive Date: 20131210
  Receipt Date: 20131210
  Transmission Date: 20140711
  Serious: Yes (Hospitalization)
  Sender: FDA-Public Use
  Company Number: US-GILEAD-2009-0025298

PATIENT
  Sex: Male
  Weight: 89.81 kg

DRUGS (11)
  1. LETAIRIS [Suspect]
     Indication: PULMONARY ARTERIAL HYPERTENSION
     Route: 048
     Dates: start: 20090923
  2. REVATIO [Concomitant]
     Route: 048
  3. FUROSEMIDE [Concomitant]
     Route: 048
  4. NADOLOL [Concomitant]
     Route: 048
  5. DIGITEK [Concomitant]
     Route: 046
  6. OXYGEN [Concomitant]
     Route: 045
  7. SEREVENT [Concomitant]
     Route: 055
  8. PROAIR [Concomitant]
     Route: 055
  9. LORAZEPAM [Concomitant]
     Route: 048
  10. LOMOTIL [Concomitant]
     Route: 048
  11. LACTULOSE [Concomitant]
     Route: 048

REACTIONS (1)
  - Oedema [Unknown]
